FAERS Safety Report 4632904-9 (Version None)
Quarter: 2005Q2

REPORT INFORMATION
  Report Type: 
  Country: None (occurrence: None)
  Receive Date: 20050411
  Receipt Date: 20050411
  Transmission Date: 20051028
  Serious: No
  Sender: FDA-Public Use
  Company Number: None

PATIENT
  Sex: Female
  Weight: 34 kg

DRUGS (1)
  1. GEMCITABINE [Suspect]
     Indication: PANCREATIC CARCINOMA
     Dosage: 1500 MG/M2 IV OVER 150 MIN, Q WK. X3 EVERY 4 WEEKS
     Route: 042
     Dates: start: 20041007

REACTIONS (4)
  - DEHYDRATION [None]
  - PANCREATIC CARCINOMA [None]
  - PNEUMONIA [None]
  - RENAL FAILURE ACUTE [None]
